FAERS Safety Report 6540299-9 (Version None)
Quarter: 2010Q1

REPORT INFORMATION
  Report Type: 
  Country: None (occurrence: None)
  Receive Date: 20100111
  Receipt Date: 20091027
  Transmission Date: 20100710
  Serious: Yes (Hospitalization, Other)
  Sender: FDA-Public Use
  Company Number: 8053984

PATIENT
  Age: 25 Year
  Sex: Female

DRUGS (7)
  1. BETAMETHASONE [Suspect]
     Indication: MATERNAL THERAPY TO ENHANCE FOETAL LUNG MATURITY
     Dosage: (12 MG, TWO 12 MG INTRAMUSCULAR)
     Route: 030
  2. PREDNISOLONE [Suspect]
     Indication: MICROSCOPIC POLYANGIITIS
     Dosage: (60 MG, DOSE FREQ.: DAILY ORAL) ; 10 MG, MAINTENANCE DOSE DOSE FREQ.: DAILY ORAL)
     Route: 048
  3. METHYLPREDNISOLONE [Suspect]
     Indication: MICROSCOPIC POLYANGIITIS
     Dosage: (1 G, DOSE FREQ.: DAILY INTRAVENOUS (NOT OTHERWISE SPECIFIED))
     Route: 042
  4. CYCLOPHOSPHAMIDE [Suspect]
     Indication: MICROSCOPIC POLYANGIITIS
     Dosage: SEE IMAGE
     Route: 042
  5. CYCLOPHOSPHAMIDE [Suspect]
     Indication: MICROSCOPIC POLYANGIITIS
     Dosage: SEE IMAGE
     Route: 042
  6. TRIMETHOPRIM + SULFAMETHOXAZOLE [Suspect]
     Indication: PROPHYLAXIS
  7. INSULIN [Concomitant]

REACTIONS (3)
  - DRUG EXPOSURE DURING PREGNANCY [None]
  - PREMATURE LABOUR [None]
  - PREMATURE RUPTURE OF MEMBRANES [None]
